FAERS Safety Report 15650874 (Version 1)
Quarter: 2018Q4

REPORT INFORMATION
  Report Type: Spontaneous
  Country: US (occurrence: US)
  Receive Date: 20181123
  Receipt Date: 20181123
  Transmission Date: 20190205
  Serious: Yes (Death, Hospitalization, Other)
  Sender: FDA-Public Use
  Company Number: US-AUROBINDO-AUR-APL-2018-055590

PATIENT
  Age: 69 Year
  Sex: Female

DRUGS (8)
  1. AZITHROMYCIN ANHYDROUS. [Suspect]
     Active Substance: AZITHROMYCIN ANHYDROUS
     Indication: ENCEPHALITIS
     Dosage: 20 MILLIGRAM/KILOGRAM, DAILY
     Route: 065
  2. FLUCONAZOLE. [Suspect]
     Active Substance: FLUCONAZOLE
     Indication: ENCEPHALITIS
     Dosage: 12 MILLIGRAM/KILOGRAM, EVERY 6 HOURS
     Route: 065
  3. MILTEFOSINE [Suspect]
     Active Substance: MILTEFOSINE
     Indication: ENCEPHALITIS
     Dosage: 50 MILLIGRAM, 3 TIMES A DAY
     Route: 065
  4. SULFADIAZINE. [Suspect]
     Active Substance: SULFADIAZINE
     Indication: ENCEPHALITIS
     Dosage: 1.5 GRAM, EVERY 6 HOURS
     Route: 065
  5. DEXAMETHASONE. [Suspect]
     Active Substance: DEXAMETHASONE
     Indication: ENCEPHALITIS
     Dosage: UNK
     Route: 065
  6. PENTAMIDINE [Suspect]
     Active Substance: PENTAMIDINE
     Indication: ENCEPHALITIS
     Dosage: 4 MILLIGRAM/KILOGRAM, DAILY
     Route: 065
  7. DEXAMETHASONE. [Suspect]
     Active Substance: DEXAMETHASONE
     Dosage: DOSE TAPERED
  8. FLUCYTOSINE. [Suspect]
     Active Substance: FLUCYTOSINE
     Indication: ENCEPHALITIS
     Dosage: 37.5 MILLIGRAM/KILOGRAM, EVERY 6 HOURS
     Route: 065

REACTIONS (8)
  - Encephalitis [Fatal]
  - Coma [Unknown]
  - Necrosis [Unknown]
  - Somnolence [Unknown]
  - Condition aggravated [Unknown]
  - Balamuthia infection [Fatal]
  - Hypoaesthesia [Unknown]
  - Drug ineffective [Unknown]
